FAERS Safety Report 23089719 (Version 1)
Quarter: 2023Q4

REPORT INFORMATION
  Report Type: Spontaneous
  Country: US (occurrence: None)
  Receive Date: 20231020
  Receipt Date: 20231020
  Transmission Date: 20240109
  Serious: Yes (Other)
  Sender: FDA-Public Use
  Company Number: None

PATIENT
  Age: 73 Year
  Sex: Male
  Weight: 118 kg

DRUGS (1)
  1. RITUXAN [Suspect]
     Active Substance: RITUXIMAB

REACTIONS (6)
  - Dizziness [None]
  - Confusional state [None]
  - Heart rate increased [None]
  - Infusion related reaction [None]
  - Hypertension [None]
  - Dizziness [None]

NARRATIVE: CASE EVENT DATE: 20230523
